FAERS Safety Report 21456692 (Version 1)
Quarter: 2022Q4

REPORT INFORMATION
  Report Type: Spontaneous
  Country: CN (occurrence: CN)
  Receive Date: 20221014
  Receipt Date: 20221014
  Transmission Date: 20230113
  Serious: Yes (Hospitalization, Other)
  Sender: FDA-Public Use
  Company Number: CN-PBT-006098

PATIENT
  Age: 16 Year
  Sex: Female

DRUGS (12)
  1. MYCOPHENOLATE MOFETIL [Suspect]
     Active Substance: MYCOPHENOLATE MOFETIL
     Indication: Systemic lupus erythematosus
     Route: 065
  2. TACROLIMUS [Suspect]
     Active Substance: TACROLIMUS
     Indication: Systemic lupus erythematosus
     Route: 065
  3. PREDNISONE [Suspect]
     Active Substance: PREDNISONE
     Indication: Systemic lupus erythematosus
     Route: 065
  4. HYDROXYCHLOROQUINE [Suspect]
     Active Substance: HYDROXYCHLOROQUINE
     Indication: Systemic lupus erythematosus
     Route: 065
  5. ENALAPRIL MALEATE [Suspect]
     Active Substance: ENALAPRIL MALEATE
     Indication: Systemic lupus erythematosus
     Route: 065
  6. FOLIC ACID [Suspect]
     Active Substance: FOLIC ACID
     Indication: Systemic lupus erythematosus
     Route: 065
  7. MYCOPHENOLATE MOFETIL [Suspect]
     Active Substance: MYCOPHENOLATE MOFETIL
     Indication: Lupus nephritis
     Route: 065
  8. TACROLIMUS [Suspect]
     Active Substance: TACROLIMUS
     Indication: Lupus nephritis
     Route: 065
  9. PREDNISONE [Suspect]
     Active Substance: PREDNISONE
     Indication: Lupus nephritis
     Route: 065
  10. HYDROXYCHLOROQUINE [Suspect]
     Active Substance: HYDROXYCHLOROQUINE
     Indication: Lupus nephritis
     Route: 065
  11. ENALAPRIL MALEATE [Suspect]
     Active Substance: ENALAPRIL MALEATE
     Indication: Lupus nephritis
     Route: 065
  12. FOLIC ACID [Suspect]
     Active Substance: FOLIC ACID
     Indication: Lupus nephritis
     Route: 065

REACTIONS (9)
  - Pneumonia [Recovered/Resolved]
  - Infectious pleural effusion [Recovered/Resolved]
  - Septic shock [Recovered/Resolved]
  - Multiple organ dysfunction syndrome [Recovered/Resolved]
  - Disseminated varicella zoster virus infection [Recovered/Resolved]
  - Product use in unapproved indication [Unknown]
  - Drug ineffective [Unknown]
  - Systemic lupus erythematosus [Unknown]
  - Lupus nephritis [Unknown]
